FAERS Safety Report 16931507 (Version 1)
Quarter: 2019Q4

REPORT INFORMATION
  Report Type: Spontaneous
  Country: US (occurrence: US)
  Receive Date: 20191017
  Receipt Date: 20191017
  Transmission Date: 20200122
  Serious: Yes (Hospitalization, Other)
  Sender: FDA-Public Use
  Company Number: None

PATIENT
  Age: 79 Year
  Sex: Male

DRUGS (13)
  1. LEVEMIR [Concomitant]
     Active Substance: INSULIN DETEMIR
  2. LISINOPRIL. [Concomitant]
     Active Substance: LISINOPRIL
  3. AMIODARONE [Concomitant]
     Active Substance: AMIODARONE
  4. FUROSEMIDE. [Concomitant]
     Active Substance: FUROSEMIDE
  5. METOPROL TAR [Concomitant]
  6. ATENOLOL. [Concomitant]
     Active Substance: ATENOLOL
  7. REPATHA [Suspect]
     Active Substance: EVOLOCUMAB
     Indication: CORONARY ARTERY DISEASE
     Dosage: ?          OTHER FREQUENCY:EVERY 30 DAYS;?
     Route: 058
     Dates: start: 20190405
  8. LEVOTHYROXIN [Concomitant]
     Active Substance: LEVOTHYROXINE
  9. TAMSULOSIN [Concomitant]
     Active Substance: TAMSULOSIN
  10. POT CHLORIDE SOL [Concomitant]
  11. ALLOPURINOL. [Concomitant]
     Active Substance: ALLOPURINOL
  12. WARFARIN [Concomitant]
     Active Substance: WARFARIN
  13. GABAPENTIN. [Concomitant]
     Active Substance: GABAPENTIN

REACTIONS (2)
  - Vascular graft [None]
  - Therapy cessation [None]

NARRATIVE: CASE EVENT DATE: 20191009
